FAERS Safety Report 8243766-5 (Version None)
Quarter: 2012Q1

REPORT INFORMATION
  Report Type: 
  Country: None (occurrence: None)
  Receive Date: 20120329
  Receipt Date: 20110908
  Transmission Date: 20120608
  Serious: No
  Sender: FDA-Public Use
  Company Number: US-MYLANLABS-2011S1018749

PATIENT
  Sex: Female

DRUGS (2)
  1. PROTEIN SUPPLEMENT [Suspect]
     Indication: MEDICAL DIET
     Route: 048
  2. EMSAM [Suspect]
     Indication: DEPRESSION
     Dosage: Q24
     Route: 062

REACTIONS (3)
  - HEADACHE [None]
  - VOMITING [None]
  - NAUSEA [None]
